FAERS Safety Report 12591689 (Version 1)
Quarter: 2016Q3

REPORT INFORMATION
  Report Type: Spontaneous
  Country: US (occurrence: None)
  Receive Date: 20160725
  Receipt Date: 20160725
  Transmission Date: 20161109
  Serious: Yes (Hospitalization)
  Sender: FDA-Public Use
  Company Number: None

PATIENT
  Age: 54 Year
  Sex: Male
  Weight: 57.2 kg

DRUGS (12)
  1. SOFOSBUVIR 400 MG GILEAD SCIENCES, INC. [Suspect]
     Active Substance: SOFOSBUVIR
     Indication: HEPATITIS C
     Route: 048
     Dates: start: 20160301
  2. PANTOPRAZOLE (PROTONIX) [Concomitant]
  3. SILDENAFIL (VIAGRA) [Concomitant]
  4. REMERON [Concomitant]
     Active Substance: MIRTAZAPINE
  5. DACLATASVIR 60 MG BRISTOL-MYERS SQUIBB [Suspect]
     Active Substance: DACLATASVIR
     Indication: HEPATITIS C
     Route: 048
     Dates: start: 20160301
  6. COPEGUS [Suspect]
     Active Substance: RIBAVIRIN
     Indication: HEPATITIS C
     Dosage: RIBAVIRIN 200MG ALTERNATING 400MG QD PO
     Route: 048
     Dates: start: 20160301
  7. NEURONTIN [Concomitant]
     Active Substance: GABAPENTIN
  8. METOPROLOL (LOPRESSOR) [Concomitant]
  9. LANTUS [Concomitant]
     Active Substance: INSULIN GLARGINE
  10. DELTASONE [Concomitant]
     Active Substance: PREDNISONE
  11. INSULIN ASPART (NOVOLOG) [Concomitant]
  12. TACROLIMUS (PROGRAF) [Concomitant]

REACTIONS (9)
  - Nausea [None]
  - Chest discomfort [None]
  - Diabetic ketoacidosis [None]
  - Arthralgia [None]
  - Diarrhoea [None]
  - Dizziness [None]
  - Depression [None]
  - Suicidal ideation [None]
  - Vomiting [None]

NARRATIVE: CASE EVENT DATE: 20160327
